FAERS Safety Report 9971736 (Version 1)
Quarter: 2014Q1

REPORT INFORMATION
  Report Type: Spontaneous
  Country: US (occurrence: US)
  Receive Date: 20140306
  Receipt Date: 20140306
  Transmission Date: 20141002
  Serious: No
  Sender: FDA-Public Use
  Company Number: US-ABBVIE-13P-163-1153425-00

PATIENT
  Age: 37 Year
  Sex: Female
  Weight: 42.22 kg

DRUGS (6)
  1. HUMIRA [Suspect]
     Indication: PSORIASIS
     Dates: start: 20130924, end: 20130924
  2. METHOTREXATE [Concomitant]
     Indication: PSORIASIS
  3. PREDNISONE [Concomitant]
     Indication: PSORIASIS
  4. VITAMIN D [Concomitant]
     Indication: PRODUCT USED FOR UNKNOWN INDICATION
  5. LEVOTHYROXINE [Concomitant]
     Indication: HYPOTHYROIDISM
  6. FOLIC ACID [Concomitant]
     Indication: PRODUCT USED FOR UNKNOWN INDICATION

REACTIONS (1)
  - Injection site pain [Not Recovered/Not Resolved]
